FAERS Safety Report 14350935 (Version 1)
Quarter: 2018Q1

REPORT INFORMATION
  Report Type: Spontaneous
  Country: FR (occurrence: FR)
  Receive Date: 20180104
  Receipt Date: 20180104
  Transmission Date: 20180509
  Serious: Yes (Other)
  Sender: FDA-Public Use
  Company Number: FR-MERCK KGAA-2038378

PATIENT
  Age: 70 Year
  Sex: Male
  Weight: 87 kg

DRUGS (3)
  1. NOVOTHYROX [Suspect]
     Active Substance: LEVOTHYROXINE SODIUM
     Indication: THYROIDECTOMY
     Route: 048
     Dates: start: 20170722, end: 20171025
  2. KARDEGIC (ACETYLSALICYLATE LYSINE)(ACETYLSALICYLATE LYSINE) [Concomitant]
     Route: 048
  3. FENOFIBRATE(FENOFIBRATE) [Concomitant]
     Route: 048

REACTIONS (4)
  - Tinnitus [Recovered/Resolved]
  - Vomiting [Recovered/Resolved]
  - Vertigo [Recovered/Resolved]
  - Nausea [Recovered/Resolved]

NARRATIVE: CASE EVENT DATE: 201707
